FAERS Safety Report 23753525 (Version 1)
Quarter: 2024Q2

REPORT INFORMATION
  Report Type: Spontaneous
  Country: US (occurrence: None)
  Receive Date: 20240417
  Receipt Date: 20240417
  Transmission Date: 20240715
  Serious: No
  Sender: FDA-Public Use
  Company Number: None

PATIENT
  Age: 51 Year
  Sex: Male
  Weight: 94.5 kg

DRUGS (8)
  1. OZEMPIC [Suspect]
     Active Substance: SEMAGLUTIDE
     Indication: Type 2 diabetes mellitus
     Dosage: OTHER QUANTITY : 1 INJECTION(S);?OTHER FREQUENCY : 1/WEEK;?
     Route: 058
     Dates: start: 20240408
  2. PREGABALIN [Concomitant]
     Active Substance: PREGABALIN
  3. METFORMIN [Concomitant]
     Active Substance: METFORMIN HYDROCHLORIDE
  4. JARDIANCE [Concomitant]
     Active Substance: EMPAGLIFLOZIN
  5. METOPROLOL [Concomitant]
     Active Substance: METOPROLOL
  6. RABEPRAZOLE [Concomitant]
     Active Substance: RABEPRAZOLE
  7. METHIMAZOLE [Concomitant]
     Active Substance: METHIMAZOLE
  8. ROSUVASTATIN [Concomitant]
     Active Substance: ROSUVASTATIN

REACTIONS (9)
  - Neuropathy peripheral [None]
  - Hypersensitivity [None]
  - Sunburn [None]
  - Myalgia [None]
  - Influenza [None]
  - Back pain [None]
  - Arthralgia [None]
  - Pain in extremity [None]
  - Pain in extremity [None]

NARRATIVE: CASE EVENT DATE: 20240412
